FAERS Safety Report 18666128 (Version 1)
Quarter: 2020Q4

REPORT INFORMATION
  Report Type: Spontaneous
  Country: GB (occurrence: GB)
  Receive Date: 20201226
  Receipt Date: 20201226
  Transmission Date: 20210114
  Serious: Yes (Disabling, Other)
  Sender: FDA-Public Use
  Company Number: GB-TEVA-2020-GB-1861451

PATIENT
  Age: 32 Year
  Sex: Female
  Weight: 56 kg

DRUGS (9)
  1. ISOPROPYL ALCOHOL. [Concomitant]
     Active Substance: ISOPROPYL ALCOHOL
  2. HYDROCORTISONE. [Suspect]
     Active Substance: HYDROCORTISONE
     Indication: ECZEMA
     Dosage: USE AS OFTEN AS REQUIRED
     Route: 061
     Dates: start: 20000303, end: 20200822
  3. DERMOVATE [Suspect]
     Active Substance: CLOBETASOL
     Indication: ECZEMA
     Dosage: BY DR ADVICE
     Route: 061
     Dates: start: 20070603, end: 20180702
  4. BALNEUM [Concomitant]
  5. CETIRIZINE DIHYDROCHLORIDE [Concomitant]
     Active Substance: CETIRIZINE HYDROCHLORIDE
  6. ZOPICLONE [Concomitant]
     Active Substance: ZOPICLONE
  7. HYDROXYZINE [Concomitant]
     Active Substance: HYDROXYZINE HYDROCHLORIDE
  8. TACROLIMUS. [Suspect]
     Active Substance: TACROLIMUS
     Indication: ECZEMA
     Dosage: 2 DF
     Route: 061
     Dates: start: 20160303, end: 20180318
  9. EUMOVATE [Suspect]
     Active Substance: CLOBETASONE BUTYRATE
     Indication: ECZEMA
     Dosage: AS MUCH AS REQUIRED AS PER DR ADVICE
     Route: 061
     Dates: start: 20170301, end: 20200821

REACTIONS (19)
  - Skin exfoliation [Not Recovered/Not Resolved]
  - Application site erythema [Not Recovered/Not Resolved]
  - Steroid withdrawal syndrome [Unknown]
  - Alopecia [Not Recovered/Not Resolved]
  - Depression [Unknown]
  - Weight decreased [Not Recovered/Not Resolved]
  - Depressed mood [Unknown]
  - Skin atrophy [Not Recovered/Not Resolved]
  - Condition aggravated [Unknown]
  - Wound [Not Recovered/Not Resolved]
  - Stomatitis [Not Recovered/Not Resolved]
  - Formication [Unknown]
  - Urticaria [Not Recovered/Not Resolved]
  - Pruritus [Not Recovered/Not Resolved]
  - Insomnia [Not Recovered/Not Resolved]
  - Wound infection [Not Recovered/Not Resolved]
  - Wound secretion [Unknown]
  - Anxiety [Not Recovered/Not Resolved]
  - Muscle twitching [Unknown]

NARRATIVE: CASE EVENT DATE: 20170404
